FAERS Safety Report 8161877-X (Version None)
Quarter: 2012Q1

REPORT INFORMATION
  Report Type: 
  Country: None (occurrence: None)
  Receive Date: 20120224
  Receipt Date: 20110824
  Transmission Date: 20120608
  Serious: No
  Sender: FDA-Public Use
  Company Number: US-BRISTOL-MYERS SQUIBB COMPANY-15968050

PATIENT
  Age: 58 Year
  Sex: Female

DRUGS (4)
  1. PRAVASTATIN SODIUM [Concomitant]
  2. GLUCOPHAGE [Suspect]
     Indication: TYPE 2 DIABETES MELLITUS
     Dosage: OVER 18 YEARS AGO
     Route: 048
  3. HUMALOG [Concomitant]
     Dosage: HUMALOG INSULIN PUMP
  4. BENAZEPRIL HYDROCHLORIDE [Concomitant]

REACTIONS (2)
  - HYPOAESTHESIA [None]
  - DIARRHOEA [None]
